FAERS Safety Report 9780249 (Version 2)
Quarter: 2014Q1

REPORT INFORMATION
  Report Type: Spontaneous
  Country: US (occurrence: US)
  Receive Date: 20131223
  Receipt Date: 20140103
  Transmission Date: 20141002
  Serious: Yes (Other)
  Sender: FDA-Public Use
  Company Number: US-OTSUKA-US-2013-12379

PATIENT
  Age: 32 Year
  Sex: Male
  Weight: 142 kg

DRUGS (4)
  1. ABILIFY MAINTENA [Suspect]
     Indication: SCHIZOPHRENIA
     Dosage: 400 MG MILLIGRAM(S), QM
     Route: 030
     Dates: start: 20130626
  2. ABILIFY [Concomitant]
     Indication: SCHIZOPHRENIA
     Dosage: 20-30 MG
     Route: 048
     Dates: start: 20130612
  3. BUSPAR [Concomitant]
     Indication: PRODUCT USED FOR UNKNOWN INDICATION
     Dosage: 10 MG MILLIGRAM(S), BID
  4. XANAX [Concomitant]
     Indication: PRODUCT USED FOR UNKNOWN INDICATION
     Dosage: 0.2 MG MILLIGRAM(S), QD PRN

REACTIONS (3)
  - Hallucination, auditory [Unknown]
  - Agitation [Unknown]
  - Anger [Unknown]
